FAERS Safety Report 9436217 (Version 2)
Quarter: 2013Q3

REPORT INFORMATION
  Report Type: Spontaneous
  Country: GB (occurrence: GB)
  Receive Date: 20130801
  Receipt Date: 20130816
  Transmission Date: 20140515
  Serious: Yes (Hospitalization, Other)
  Sender: FDA-Public Use
  Company Number: GB-AMGEN-GBRSP2013053386

PATIENT
  Age: 77 Year
  Sex: Male

DRUGS (4)
  1. ARANESP [Suspect]
     Indication: ANAEMIA
     Dosage: 40 MUG, Q2WK
     Route: 058
     Dates: start: 201306
  2. ASPIRIN [Concomitant]
  3. SIMVASTATIN [Concomitant]
  4. SODIUM BICARBONATE [Concomitant]

REACTIONS (3)
  - Surgery [Unknown]
  - Hypoacusis [Unknown]
  - Exposure via direct contact [Unknown]
